FAERS Safety Report 22650028 (Version 1)
Quarter: 2023Q2

REPORT INFORMATION
  Report Type: Spontaneous
  Country: US (occurrence: US)
  Receive Date: 20230628
  Receipt Date: 20230628
  Transmission Date: 20230722
  Serious: No
  Sender: FDA-Public Use
  Company Number: US-SA-SAC20230627000655

PATIENT
  Sex: Female
  Weight: 91.156 kg

DRUGS (11)
  1. DUPIXENT [Suspect]
     Active Substance: DUPILUMAB
     Indication: Dermatitis atopic
     Dosage: 300 MG, QOW
     Route: 058
  2. BACLOFEN [Concomitant]
     Active Substance: BACLOFEN
  3. ZYRTEC [Concomitant]
     Active Substance: CETIRIZINE HYDROCHLORIDE
  4. TOPIRAMATE [Concomitant]
     Active Substance: TOPIRAMATE
  5. ASPIRIN [Concomitant]
     Active Substance: ASPIRIN
  6. HYDROCHLOROTHIAZIDE [Concomitant]
     Active Substance: HYDROCHLOROTHIAZIDE
  7. NIFEDIPINE [Concomitant]
     Active Substance: NIFEDIPINE
  8. HYDRALAZINE HCL [Concomitant]
     Active Substance: HYDRALAZINE HYDROCHLORIDE
  9. VALSARTAN [Concomitant]
     Active Substance: VALSARTAN
  10. ACETAZOLAMIDE [Concomitant]
     Active Substance: ACETAZOLAMIDE
  11. DULOXETINE HYDROCHLORIDE [Concomitant]
     Active Substance: DULOXETINE HYDROCHLORIDE

REACTIONS (1)
  - Urticaria [Not Recovered/Not Resolved]
